FAERS Safety Report 4471188-1 (Version None)
Quarter: 2004Q4

REPORT INFORMATION
  Report Type: 
  Country: None (occurrence: None)
  Receive Date: 20041011
  Receipt Date: 20040329
  Transmission Date: 20050328
  Serious: Yes (Hospitalization)
  Sender: FDA-Public Use
  Company Number: FR-MERCK-0403FRA00118

PATIENT
  Age: 81 Year
  Sex: Female

DRUGS (4)
  1. BUFLOMEDIL HYDROCHLORIDE [Suspect]
     Indication: ARTERITIS
     Route: 048
     Dates: end: 20040309
  2. MEMANTINE HYDROCHLORIDE [Concomitant]
     Indication: DEMENTIA
     Route: 048
     Dates: start: 20040108
  3. PREDNISONE [Concomitant]
     Indication: TEMPORAL ARTERITIS
     Route: 048
  4. TIMOPTIC [Suspect]
     Indication: GLAUCOMA
     Route: 047

REACTIONS (2)
  - ORTHOSTATIC HYPOTENSION [None]
  - PAIN [None]
